FAERS Safety Report 15686324 (Version 5)
Quarter: 2019Q3

REPORT INFORMATION
  Report Type: Report from Study
  Country: US (occurrence: US)
  Receive Date: 20181204
  Receipt Date: 20190819
  Transmission Date: 20191004
  Serious: Yes (Hospitalization, Other)
  Sender: FDA-Public Use
  Company Number: US-TAKEDA-2018TUS020082

PATIENT
  Sex: Female

DRUGS (2)
  1. PONATINIB [Suspect]
     Active Substance: PONATINIB
     Dosage: 30 MILLIGRAM, QD
     Route: 048
  2. PONATINIB [Suspect]
     Active Substance: PONATINIB
     Indication: CHRONIC MYELOID LEUKAEMIA
     Dosage: 45 MILLIGRAM, QD
     Route: 048
     Dates: start: 201805

REACTIONS (10)
  - Chronic myeloid leukaemia recurrent [Unknown]
  - Flushing [Unknown]
  - Hepatic enzyme increased [Unknown]
  - Hyperhidrosis [Unknown]
  - Cataract [Unknown]
  - Peripheral swelling [Unknown]
  - Joint swelling [Unknown]
  - Asthenia [Unknown]
  - Malaise [Unknown]
  - Rash [Unknown]
